FAERS Safety Report 6368990-8 (Version None)
Quarter: 2009Q3

REPORT INFORMATION
  Report Type: 
  Country: None (occurrence: None)
  Receive Date: 20090922
  Receipt Date: 20090917
  Transmission Date: 20100115
  Serious: Yes (Other)
  Sender: FDA-Public Use
  Company Number: US-ABBOTT-09P-163-0579411-00

PATIENT
  Sex: Female

DRUGS (5)
  1. HUMIRA [Suspect]
     Indication: CROHN'S DISEASE
     Route: 058
     Dates: start: 20090415, end: 20090415
  2. HUMIRA [Suspect]
     Route: 058
     Dates: start: 20090401, end: 20090401
  3. HUMIRA [Suspect]
     Route: 058
     Dates: start: 20090501, end: 20090701
  4. DIPENTUM [Concomitant]
     Indication: CROHN'S DISEASE
  5. METHOTREXATE [Concomitant]
     Indication: CROHN'S DISEASE

REACTIONS (15)
  - CHEST PAIN [None]
  - COLITIS [None]
  - COUGH [None]
  - FIBROSIS [None]
  - INFLAMMATION [None]
  - MENORRHAGIA [None]
  - PAIN OF SKIN [None]
  - PARANASAL SINUS HYPERSECRETION [None]
  - PSEUDOPOLYP [None]
  - RASH PAPULAR [None]
  - RASH PRURITIC [None]
  - RESPIRATORY TRACT CONGESTION [None]
  - SINUS HEADACHE [None]
  - SINUSITIS [None]
  - WOUND SECRETION [None]
